FAERS Safety Report 8423923-5 (Version None)
Quarter: 2012Q2

REPORT INFORMATION
  Report Type: 
  Country: None (occurrence: None)
  Receive Date: 20120608
  Receipt Date: 20120322
  Transmission Date: 20120825
  Serious: No
  Sender: FDA-Public Use
  Company Number: US-ASTRAZENECA-2012SE11342

PATIENT
  Age: 43 Year
  Sex: Male

DRUGS (1)
  1. ATACAND [Suspect]
     Route: 048

REACTIONS (4)
  - MALAISE [None]
  - MIGRAINE [None]
  - HEPATITIS C [None]
  - THERAPEUTIC RESPONSE UNEXPECTED [None]
